FAERS Safety Report 19652296 (Version 1)
Quarter: 2021Q3

REPORT INFORMATION
  Report Type: Spontaneous
  Country: US (occurrence: US)
  Receive Date: 20210803
  Receipt Date: 20210803
  Transmission Date: 20211014
  Serious: Yes (Death)
  Sender: FDA-Public Use
  Company Number: US-ENDO PHARMACEUTICALS INC-2021-009179

PATIENT
  Age: 38 Year
  Sex: Male

DRUGS (2)
  1. RANITIDINE. [Suspect]
     Active Substance: RANITIDINE
     Indication: DYSPEPSIA
     Dosage: 150 MG, DAILY
     Route: 065
     Dates: start: 198001, end: 201106
  2. RANITIDINE HYDROCHLORIDE. [Suspect]
     Active Substance: RANITIDINE HYDROCHLORIDE
     Indication: DYSPEPSIA
     Dosage: 150 MG, DAILY
     Route: 065
     Dates: start: 198001, end: 201106

REACTIONS (5)
  - Hepatic cancer stage III [Fatal]
  - Lung carcinoma cell type unspecified stage III [Fatal]
  - Brain cancer metastatic [Fatal]
  - Testicular cancer metastatic [Fatal]
  - Skin cancer [Fatal]

NARRATIVE: CASE EVENT DATE: 20091201
